FAERS Safety Report 9976822 (Version 1)
Quarter: 2014Q1

REPORT INFORMATION
  Report Type: Report from Study
  Country: US (occurrence: US)
  Receive Date: 20140306
  Receipt Date: 20140306
  Transmission Date: 20141002
  Serious: No
  Sender: FDA-Public Use
  Company Number: US-ABBVIE-13P-163-1166286-00

PATIENT
  Age: 63 Year
  Sex: Female

DRUGS (15)
  1. HUMIRA [Suspect]
     Indication: RHEUMATOID ARTHRITIS
     Dosage: INITIAL DOSE
     Dates: start: 20131102
  2. METHOTREXATE [Concomitant]
     Indication: RHEUMATOID ARTHRITIS
     Dosage: 8 PILLS WEEKLY
  3. FOLIC ACID [Concomitant]
     Indication: PRODUCT USED FOR UNKNOWN INDICATION
     Dosage: 2 IN AM AND 2 IN PM
  4. PREDNISONE [Concomitant]
     Indication: RHEUMATOID ARTHRITIS
     Dosage: 5 MG DAILY
  5. METOPROLOL [Concomitant]
     Indication: BLOOD PRESSURE
  6. HYDROCHLOROT [Concomitant]
     Indication: FLUID IMBALANCE
     Dosage: 25 MG DAILY
  7. ASA [Concomitant]
     Indication: PROPHYLAXIS
     Dosage: 81 MG DAILY
  8. VITAMIN D [Concomitant]
     Indication: PROPHYLAXIS
     Dosage: 1000 IU DAILY
  9. GARLIC [Concomitant]
     Indication: PROPHYLAXIS
     Dosage: 500 MG DAILY
  10. GENERIC PRILOSEC [Concomitant]
     Indication: GASTROOESOPHAGEAL REFLUX DISEASE
     Dosage: DAILY
  11. GENERIC ALLEGRA [Concomitant]
     Indication: HYPERSENSITIVITY
     Dosage: 180 MG DAILY
  12. CALCIUM 500 MG PLUS D [Concomitant]
     Indication: OSTEOPOROSIS
  13. MULTIVITAMIN WOMENS 50 PLUS [Concomitant]
     Indication: VITAMIN SUPPLEMENTATION
  14. FLAX SEED PLUS FISH OIL [Concomitant]
     Indication: VITAMIN SUPPLEMENTATION
  15. BENADRYL [Concomitant]
     Indication: HYPERSENSITIVITY

REACTIONS (1)
  - Injection site pain [Recovered/Resolved]
